FAERS Safety Report 7308802-9 (Version None)
Quarter: 2011Q1

REPORT INFORMATION
  Report Type: 
  Country: None (occurrence: None)
  Receive Date: 20110211
  Receipt Date: 20110129
  Transmission Date: 20110831
  Serious: Yes (Hospitalization, Other)
  Sender: FDA-Public Use
  Company Number: 1000018701

PATIENT
  Age: 33 Year
  Sex: Female

DRUGS (2)
  1. CITALOPRAM (CITALOPRAM HYDROBROMIDE) (TABLETS) [Suspect]
     Indication: DEPRESSION
     Dosage: 40 MG (20 MG,2 IN 1 D),ORAL ; (2800 MG,ONCE),ORAL
     Route: 048
     Dates: start: 20090101, end: 20110125
  2. CITALOPRAM (CITALOPRAM HYDROBROMIDE) (TABLETS) [Suspect]
     Indication: DEPRESSION
     Dosage: 40 MG (20 MG,2 IN 1 D),ORAL ; (2800 MG,ONCE),ORAL
     Route: 048
     Dates: start: 20110128, end: 20110128

REACTIONS (4)
  - INTENTIONAL OVERDOSE [None]
  - SUICIDE ATTEMPT [None]
  - CONVULSION [None]
  - PROTEIN URINE PRESENT [None]
